FAERS Safety Report 5766592-5 (Version None)
Quarter: 2008Q2

REPORT INFORMATION
  Report Type: 
  Country: None (occurrence: None)
  Receive Date: 20080610
  Receipt Date: 20080610
  Transmission Date: 20081010
  Serious: No
  Sender: FDA-Public Use
  Company Number: None

PATIENT
  Age: 19 Year
  Sex: Female
  Weight: 58.9676 kg

DRUGS (1)
  1. AVELOX [Suspect]
     Indication: SINUSITIS
     Dosage: 400MG ONCE DAILY PO
     Route: 048
     Dates: start: 20080607, end: 20080609

REACTIONS (5)
  - EYELID OEDEMA [None]
  - LIP SWELLING [None]
  - RASH [None]
  - SWELLING FACE [None]
  - URTICARIA [None]
